FAERS Safety Report 8833709 (Version 3)
Quarter: 2012Q4

REPORT INFORMATION
  Report Type: 
  Country: US (occurrence: US)
  Receive Date: 20121010
  Receipt Date: 20121127
  Transmission Date: 20130627
  Serious: No
  Sender: FDA-Public Use
  Company Number: US-VERTEX PHARMACEUTICAL INC.-2012-021870

PATIENT
  Age: 70 None
  Sex: Female

DRUGS (3)
  1. VX-950 (TELAPREVIR) [Suspect]
     Indication: HEPATITIS C
     Dosage: 750 mg, tid
     Route: 048
     Dates: start: 201208, end: 2012
  2. PEGASYS [Concomitant]
     Indication: HEPATITIS C
     Dosage: 180 ?g, UNK
     Route: 058
     Dates: start: 201208, end: 2012
  3. RIBASPHERE [Concomitant]
     Indication: HEPATITIS C
     Dosage: 600 mg, bid
     Route: 048
     Dates: start: 201208, end: 2012

REACTIONS (9)
  - Somnolence [Unknown]
  - Decreased appetite [Unknown]
  - Epistaxis [Unknown]
  - Laboratory test abnormal [Unknown]
  - Rash [Unknown]
  - Haemorrhoids [Unknown]
  - Anaemia [Unknown]
  - Vomiting [Unknown]
  - Nausea [Unknown]
